FAERS Safety Report 13592894 (Version 3)
Quarter: 2018Q2

REPORT INFORMATION
  Report Type: Spontaneous
  Country: AU (occurrence: AU)
  Receive Date: 20170530
  Receipt Date: 20180521
  Transmission Date: 20180711
  Serious: Yes (Other)
  Sender: FDA-Public Use
  Company Number: PHHY2017AU076628

PATIENT
  Sex: Female

DRUGS (1)
  1. COSENTYX [Suspect]
     Active Substance: SECUKINUMAB
     Indication: PRODUCT USED FOR UNKNOWN INDICATION
     Route: 065

REACTIONS (5)
  - Aortic thrombosis [Unknown]
  - Peripheral embolism [Recovering/Resolving]
  - Crohn^s disease [Recovering/Resolving]
  - Arterial thrombosis [Unknown]
  - Colitis [Unknown]
